FAERS Safety Report 4322994-5 (Version None)
Quarter: 2004Q1

REPORT INFORMATION
  Report Type: 
  Country: None (occurrence: None)
  Receive Date: 20040322
  Receipt Date: 20040309
  Transmission Date: 20041129
  Serious: Yes (Hospitalization, Other)
  Sender: FDA-Public Use
  Company Number: US-JNJFOC-20031202526

PATIENT
  Age: 70 Year
  Sex: Female
  Weight: 74.8435 kg

DRUGS (7)
  1. REMICADE [Suspect]
     Indication: RHEUMATOID ARTHRITIS
     Dosage: INTRAVENOUS
     Route: 042
     Dates: start: 20031118, end: 20031118
  2. ARAVA [Concomitant]
  3. PREDNISONE [Concomitant]
  4. PREMARIN [Concomitant]
  5. PROVERA [Concomitant]
  6. FOLIC ACID [Concomitant]
  7. B 12 (CYANOCOBALAMIN) INJECTION [Concomitant]

REACTIONS (3)
  - HEART RATE INCREASED [None]
  - INFLUENZA [None]
  - PAIN IN EXTREMITY [None]
